FAERS Safety Report 9254093 (Version 1)
Quarter: 2013Q2

REPORT INFORMATION
  Report Type: Spontaneous
  Country: CH (occurrence: CH)
  Receive Date: 20130425
  Receipt Date: 20130425
  Transmission Date: 20140414
  Serious: Yes (Other)
  Sender: FDA-Public Use
  Company Number: CH-009507513-1304CHE014342

PATIENT
  Sex: Female

DRUGS (1)
  1. IMPLANON [Suspect]
     Indication: CONTRACEPTION
     Route: 058

REACTIONS (3)
  - Ectopic pregnancy [Unknown]
  - Unintended pregnancy [Unknown]
  - Ectopic pregnancy termination [Unknown]
